FAERS Safety Report 17029511 (Version 1)
Quarter: 2019Q4

REPORT INFORMATION
  Report Type: Report from Study
  Country: US (occurrence: US)
  Receive Date: 20191114
  Receipt Date: 20191114
  Transmission Date: 20200122
  Serious: Yes (Other)
  Sender: FDA-Public Use
  Company Number: US-AMGEN-USASL2019187581

PATIENT
  Age: 58 Year
  Sex: Female

DRUGS (1)
  1. REUSABLE AUTOINJECTOR [Suspect]
     Active Substance: DEVICE
     Indication: RHEUMATOID ARTHRITIS
     Dosage: 50 MILLIGRAM, QWK
     Route: 065

REACTIONS (5)
  - Sinusitis [Unknown]
  - Diabetes mellitus [Unknown]
  - Fungal infection [Unknown]
  - Deafness unilateral [Unknown]
  - Ocular vasculitis [Unknown]
